FAERS Safety Report 7550384-0 (Version None)
Quarter: 2011Q2

REPORT INFORMATION
  Report Type: 
  Country: None (occurrence: None)
  Receive Date: 20110615
  Receipt Date: 20110604
  Transmission Date: 20111010
  Serious: Yes (Hospitalization)
  Sender: FDA-Public Use
  Company Number: DE-ROCHE-765762

PATIENT
  Sex: Female
  Weight: 79 kg

DRUGS (15)
  1. PANTOPRAZOLE [Concomitant]
  2. CALCITRIOL [Concomitant]
  3. CELLCEPT [Concomitant]
  4. RIBAVIRIN [Suspect]
     Route: 048
     Dates: start: 20110209, end: 20110301
  5. URSO FALK [Concomitant]
  6. PEGINTERFERON ALFA-2A [Suspect]
     Route: 058
     Dates: start: 20110209
  7. METOPROLOL SUCCINATE [Concomitant]
  8. CERTICAN [Concomitant]
  9. TORSEMIDE [Concomitant]
  10. ASPIRIN [Concomitant]
  11. CALCIUM CARBONATE [Concomitant]
  12. CHLORHEXAMED [Concomitant]
  13. RIBAVIRIN [Suspect]
     Route: 048
     Dates: start: 20110301
  14. CARMEN [Concomitant]
  15. LEVOTHYROXINE SODIUM [Concomitant]

REACTIONS (1)
  - HAEMOLYSIS [None]
